FAERS Safety Report 7772789-5 (Version None)
Quarter: 2011Q3

REPORT INFORMATION
  Report Type: 
  Country: None (occurrence: None)
  Receive Date: 20110922
  Receipt Date: 20100311
  Transmission Date: 20111222
  Serious: No
  Sender: FDA-Public Use
  Company Number: US-ASTRAZENECA-2009SE08650

PATIENT
  Age: 49 Year
  Sex: Female
  Weight: 92.5 kg

DRUGS (8)
  1. METHOCARBAMOL [Concomitant]
     Dates: start: 20060501
  2. SEROQUEL [Suspect]
     Indication: SLEEP DISORDER
     Route: 048
     Dates: start: 19990101, end: 20070301
  3. SEROQUEL [Suspect]
     Route: 048
     Dates: start: 20051230
  4. ABILIFY [Concomitant]
     Dates: start: 20070101
  5. CYCLOBENZAPR [Concomitant]
     Dates: start: 20060310
  6. PROCHLORPER [Concomitant]
     Dates: start: 20060509
  7. SEROQUEL [Suspect]
     Indication: DEPRESSION
     Route: 048
     Dates: start: 19990101, end: 20070301
  8. SEROQUEL [Suspect]
     Route: 048
     Dates: start: 20051230

REACTIONS (4)
  - ARTHRALGIA [None]
  - TYPE 2 DIABETES MELLITUS [None]
  - BACK DISORDER [None]
  - PAIN [None]
